FAERS Safety Report 16615833 (Version 1)
Quarter: 2019Q3

REPORT INFORMATION
  Report Type: Spontaneous
  Country: US (occurrence: US)
  Receive Date: 20190723
  Receipt Date: 20190723
  Transmission Date: 20191004
  Serious: No
  Sender: FDA-Public Use
  Company Number: US-ABBVIE-19P-163-2824500-00

PATIENT
  Sex: Female

DRUGS (2)
  1. NORCO [Concomitant]
     Active Substance: ACETAMINOPHEN\HYDROCODONE BITARTRATE
     Indication: PRODUCT USED FOR UNKNOWN INDICATION
  2. ORILISSA [Suspect]
     Active Substance: ELAGOLIX SODIUM
     Indication: ENDOMETRIOSIS
     Route: 048
     Dates: start: 2018

REACTIONS (9)
  - Rectal haemorrhage [Unknown]
  - Drug ineffective [Unknown]
  - Gastrointestinal pain [Unknown]
  - Arthralgia [Unknown]
  - Pain [Unknown]
  - Myalgia [Unknown]
  - Bone pain [Unknown]
  - Dysuria [Unknown]
  - Insomnia [Unknown]
